FAERS Safety Report 12206359 (Version 1)
Quarter: 2016Q1

REPORT INFORMATION
  Report Type: Spontaneous
  Country: US (occurrence: None)
  Receive Date: 20160323
  Receipt Date: 20160323
  Transmission Date: 20160526
  Serious: Yes (Death)
  Sender: FDA-Public Use
  Company Number: None

PATIENT
  Age: 79 Year
  Sex: Male
  Weight: 89.81 kg

DRUGS (3)
  1. CEFDINIR 300MG CAP NOR [Suspect]
     Active Substance: CEFDINIR
     Indication: SINUSITIS
     Dosage: ONE PILL EVERY 12 HOURS
     Route: 048
     Dates: start: 20131026, end: 20131028
  2. TYLENOL [Concomitant]
     Active Substance: ACETAMINOPHEN
  3. WARFARIN [Concomitant]
     Active Substance: WARFARIN

REACTIONS (2)
  - Mouth haemorrhage [None]
  - Epistaxis [None]

NARRATIVE: CASE EVENT DATE: 20131029
